FAERS Safety Report 7118142-9 (Version None)
Quarter: 2010Q4

REPORT INFORMATION
  Report Type: 
  Country: None (occurrence: None)
  Receive Date: 20101123
  Receipt Date: 20101111
  Transmission Date: 20110411
  Serious: Yes (Hospitalization, Other)
  Sender: FDA-Public Use
  Company Number: US-BAYER-201025566NA

PATIENT
  Age: 18 Year
  Sex: Female
  Weight: 82 kg

DRUGS (4)
  1. YAZ [Suspect]
     Indication: PRODUCT USED FOR UNKNOWN INDICATION
     Route: 048
  2. YASMIN [Suspect]
     Indication: PRODUCT USED FOR UNKNOWN INDICATION
     Route: 048
     Dates: start: 20050101, end: 20070101
  3. FLUOXETINE [Concomitant]
  4. SEROQUEL [Concomitant]

REACTIONS (3)
  - CHOLECYSTECTOMY [None]
  - HOSPITALISATION [None]
  - INJURY [None]
